FAERS Safety Report 4583420-4 (Version None)
Quarter: 2005Q1

REPORT INFORMATION
  Report Type: 
  Country: None (occurrence: None)
  Receive Date: 20050211
  Receipt Date: 20050204
  Transmission Date: 20050727
  Serious: Yes (Life-Threatening)
  Sender: FDA-Public Use
  Company Number: 2005AP01029

PATIENT
  Age: 4 Year
  Sex: Female

DRUGS (1)
  1. MARCAINE [Suspect]

REACTIONS (3)
  - ANAESTHETIC COMPLICATION [None]
  - ASPIRATION [None]
  - PRODUCTIVE COUGH [None]
